FAERS Safety Report 6074223-2 (Version None)
Quarter: 2009Q1

REPORT INFORMATION
  Report Type: 
  Country: None (occurrence: None)
  Receive Date: 20090211
  Receipt Date: 20090130
  Transmission Date: 20090719
  Serious: Yes (Other)
  Sender: FDA-Public Use
  Company Number: US-JNJCH-2009002901

PATIENT
  Age: 71 Year
  Sex: Male
  Weight: 61.2 kg

DRUGS (1)
  1. BENGAY ULTRA STRENGTH [Suspect]
     Indication: MYALGIA
     Dosage: TEXT:UNSPECIFIED 2 OR 3 TIMES A DAY
     Route: 061

REACTIONS (5)
  - AGEUSIA [None]
  - ANOSMIA [None]
  - EATING DISORDER [None]
  - INCORRECT DRUG ADMINISTRATION DURATION [None]
  - WEIGHT DECREASED [None]
